FAERS Safety Report 19985057 (Version 1)
Quarter: 2021Q4

REPORT INFORMATION
  Report Type: Spontaneous
  Country: US (occurrence: US)
  Receive Date: 20211022
  Receipt Date: 20211022
  Transmission Date: 20220304
  Serious: Yes (Life-Threatening, Hospitalization, Other)
  Sender: FDA-Public Use
  Company Number: US-PFIZER INC-202101373394

PATIENT
  Age: 65 Year
  Sex: Male

DRUGS (1)
  1. METHYLPREDNISOLONE ACETATE [Suspect]
     Active Substance: METHYLPREDNISOLONE ACETATE
     Indication: Acute leukaemia
     Dosage: 1 G, INFUSION

REACTIONS (4)
  - Ventricular fibrillation [Unknown]
  - Chest pain [Unknown]
  - Tachycardia [Unknown]
  - Tachypnoea [Unknown]
